FAERS Safety Report 21016525 (Version 1)
Quarter: 2022Q2

REPORT INFORMATION
  Report Type: Spontaneous
  Country: US (occurrence: None)
  Receive Date: 20220627
  Receipt Date: 20220627
  Transmission Date: 20220721
  Serious: Yes (unspecified)
  Sender: FDA-Public Use
  Company Number: None

PATIENT
  Age: 68 Year
  Sex: Female
  Weight: 54 kg

DRUGS (1)
  1. EMPLICITI [Suspect]
     Active Substance: ELOTUZUMAB
     Indication: Plasma cell myeloma
     Dosage: FREQUENCY : WEEKLY;?
     Route: 041
     Dates: start: 20220615

REACTIONS (3)
  - Feeling cold [None]
  - Chills [None]
  - Infusion related reaction [None]

NARRATIVE: CASE EVENT DATE: 20220615
